FAERS Safety Report 7275206-7 (Version None)
Quarter: 2011Q1

REPORT INFORMATION
  Report Type: 
  Country: None (occurrence: None)
  Receive Date: 20110204
  Receipt Date: 20110125
  Transmission Date: 20110831
  Serious: Yes (Hospitalization)
  Sender: FDA-Public Use
  Company Number: PHHY2011US06974

PATIENT
  Age: 46 Year
  Sex: Female
  Weight: 57 kg

DRUGS (4)
  1. MYFORTIC [Suspect]
     Dosage: 350 MG, QD
     Dates: start: 20030801
  2. TACROLIMUS [Concomitant]
     Indication: PROPHYLAXIS AGAINST TRANSPLANT REJECTION
     Dosage: 10 MG, QD
     Dates: start: 20030726
  3. TACROLIMUS [Concomitant]
     Dosage: 2 MG, UNK
     Dates: start: 20080401
  4. MYFORTIC [Suspect]
     Indication: PROPHYLAXIS AGAINST TRANSPLANT REJECTION
     Dosage: 250 MG, QD
     Dates: start: 20030729

REACTIONS (1)
  - INCISIONAL HERNIA [None]
